FAERS Safety Report 16752191 (Version 1)
Quarter: 2019Q3

REPORT INFORMATION
  Report Type: Report from Study
  Country: US (occurrence: US)
  Receive Date: 20190828
  Receipt Date: 20190828
  Transmission Date: 20191005
  Serious: No
  Sender: FDA-Public Use
  Company Number: US-TESAROUBC-2019-TSO02962-US

PATIENT
  Age: 62 Year
  Sex: Female

DRUGS (16)
  1. MACROBID [Concomitant]
     Active Substance: NITROFURANTOIN\NITROFURANTOIN MONOHYDRATE
     Indication: HAEMATURIA
     Dosage: 100 MG,2 IN 1 D
     Route: 048
     Dates: start: 20190110
  2. SENOKOT [Concomitant]
     Active Substance: SENNOSIDES
     Indication: CONSTIPATION
     Dosage: 8.6 MG,2 IN 1 D
     Route: 048
     Dates: start: 20190207
  3. COBIMETINIB. [Suspect]
     Active Substance: COBIMETINIB
     Dosage: 60 MG, 1 IN 1 D
     Route: 048
     Dates: start: 20190326
  4. TRADJENTA [Concomitant]
     Active Substance: LINAGLIPTIN
     Indication: DIABETES MELLITUS
     Dosage: 5 MG,1 IN 1 D
     Route: 048
     Dates: start: 2007
  5. AMOXICILLIN. [Concomitant]
     Active Substance: AMOXICILLIN
     Indication: EAR INFECTION
     Dosage: 500 MG,1 IN 1 D
     Dates: start: 20190302
  6. COBIMETINIB. [Suspect]
     Active Substance: COBIMETINIB
     Indication: OVARIAN CANCER
     Dosage: ON DAYS 1-21 OF EACH 28-DAYCYCLE, 60 MG 1 IN 1 D
     Route: 048
     Dates: start: 20190110
  7. NIRAPARIB [Suspect]
     Active Substance: NIRAPARIB
     Dosage: 200 MG, 1 IN 1 D
     Route: 048
     Dates: start: 20190326
  8. MIRALAX [Concomitant]
     Active Substance: POLYETHYLENE GLYCOL 3350
     Indication: CONSTIPATION
     Dosage: 17 MG,1 IN 1 AS REQUIRED
     Route: 048
     Dates: start: 20190207
  9. IBUPROFEN. [Concomitant]
     Active Substance: IBUPROFEN
     Indication: FLANK PAIN
     Dosage: 800 MG,3 IN 1 D
     Route: 048
     Dates: start: 20171130
  10. LOVASTATIN. [Concomitant]
     Active Substance: LOVASTATIN
     Indication: BLOOD CHOLESTEROL INCREASED
     Dosage: 40 MG,1 IN 1 D
     Route: 048
     Dates: start: 20171221
  11. OXYCODONE [Concomitant]
     Active Substance: OXYCODONE
     Indication: FLANK PAIN
     Dosage: 10 MG,1 IN 1 AS REQUIRED
     Route: 048
     Dates: start: 20190207
  12. NIRAPARIB [Suspect]
     Active Substance: NIRAPARIB
     Indication: OVARIAN CANCER
     Dosage: ON DAYS 1-28 OF EACH 28-DAYCYCLE, 200 MG, 1 IN 1 D
     Route: 048
     Dates: start: 20190110
  13. AMLODIPINE [Concomitant]
     Active Substance: AMLODIPINE BESYLATE
     Indication: HYPERTENSION
     Dosage: 5 MG,1 IN 1 D
     Route: 048
     Dates: start: 20181115
  14. OXYCODONE [Concomitant]
     Active Substance: OXYCODONE
     Indication: FLANK PAIN
     Dosage: 5 MG,1 IN 1 D
     Route: 048
     Dates: start: 20181204
  15. INSULIN ASPART PROTAMINE [Concomitant]
     Indication: DIABETES MELLITUS
     Dosage: 15 UNIT (1 IN 1 D)
     Route: 058
     Dates: start: 2007
  16. OMEPRAZOLE. [Concomitant]
     Active Substance: OMEPRAZOLE
     Indication: DYSPEPSIA
     Dosage: 20 MG,1 IN 1 D
     Route: 048
     Dates: start: 20190425

REACTIONS (1)
  - Blood creatine phosphokinase increased [Not Recovered/Not Resolved]

NARRATIVE: CASE EVENT DATE: 20190326
